FAERS Safety Report 7883243-4 (Version None)
Quarter: 2011Q4

REPORT INFORMATION
  Report Type: 
  Country: None (occurrence: None)
  Receive Date: 20111102
  Receipt Date: 20111030
  Transmission Date: 20120403
  Serious: Yes (Hospitalization)
  Sender: FDA-Public Use
  Company Number: US-SHIRE-ALL1-2011-04211

PATIENT
  Age: 8 Year
  Sex: Male

DRUGS (1)
  1. INTUNIV [Suspect]
     Indication: PRODUCT USED FOR UNKNOWN INDICATION
     Dosage: UNK, UNKNOWN
     Route: 048
     Dates: start: 20110801

REACTIONS (4)
  - PANCREATITIS [None]
  - GASTROINTESTINAL INFLAMMATION [None]
  - GASTROINTESTINAL INFECTION [None]
  - THROMBOCYTOSIS [None]
